FAERS Safety Report 6665169-7 (Version None)
Quarter: 2010Q2

REPORT INFORMATION
  Report Type: 
  Country: None (occurrence: None)
  Receive Date: 20100402
  Receipt Date: 20100331
  Transmission Date: 20101027
  Serious: Yes (Death)
  Sender: FDA-Public Use
  Company Number: DE-WYE-G05877210

PATIENT
  Sex: Male

DRUGS (7)
  1. TORISEL [Suspect]
     Indication: METASTATIC RENAL CELL CARCINOMA
     Route: 042
     Dates: start: 20090323, end: 20091203
  2. METOCLOPRAMIDE [Concomitant]
     Dates: start: 20090423, end: 20090423
  3. JURNISTA [Concomitant]
     Route: 048
  4. METAMIZOLE [Concomitant]
  5. MACROGOL/POTASSIUM CHLORIDE/SODIUM BICARBONATE/SODIUM CHLORIDE [Concomitant]
     Dosage: IF REQUIRED
  6. DIPHENHYDRAMINE HYDROCHLORIDE [Concomitant]
     Dates: start: 20090423
  7. OMEPRAZOLE [Concomitant]

REACTIONS (1)
  - DEATH [None]
